FAERS Safety Report 5052957-6 (Version None)
Quarter: 2006Q3

REPORT INFORMATION
  Report Type: 
  Country: None (occurrence: None)
  Receive Date: 20060711
  Receipt Date: 20060619
  Transmission Date: 20061208
  Serious: Yes (Life-Threatening, Hospitalization)
  Sender: FDA-Public Use
  Company Number: DE200606001540

PATIENT
  Sex: Female
  Weight: 65 kg

DRUGS (5)
  1. GEMCITABINE [Suspect]
     Indication: BREAST CANCER
     Dosage: 1700 MG, INTRAVENOUS
     Route: 042
     Dates: start: 20060531, end: 20060531
  2. DOCETAXEL (*DOCETAXEL) UNKNOWN [Suspect]
     Indication: BREAST CANCER
     Dosage: 127.5 MG, INTRAVENOUS
     Route: 042
     Dates: start: 20060531, end: 20060531
  3. GRANOCYTE (LENOGRASTIM) [Concomitant]
  4. DEXAMETHASONE [Concomitant]
  5. NAVOBAN /SCH/ (TROPISETRON HYDROCHLORIDE) [Concomitant]

REACTIONS (7)
  - ALANINE AMINOTRANSFERASE INCREASED [None]
  - ASPARTATE AMINOTRANSFERASE INCREASED [None]
  - BILE DUCT STENOSIS [None]
  - BILIARY DILATATION [None]
  - GAMMA-GLUTAMYLTRANSFERASE INCREASED [None]
  - NEUTROPENIA [None]
  - PANCREATIC DUCT OBSTRUCTION [None]
